FAERS Safety Report 8535795-9 (Version None)
Quarter: 2012Q3

REPORT INFORMATION
  Report Type: 
  Country: None (occurrence: None)
  Receive Date: 20120725
  Receipt Date: 20120718
  Transmission Date: 20120928
  Serious: Yes (Other)
  Sender: FDA-Public Use
  Company Number: US-JNJFOC-20120710043

PATIENT
  Sex: Male
  Weight: 104.33 kg

DRUGS (5)
  1. LISINOPRIL [Concomitant]
     Indication: HYPERTENSION
     Route: 048
  2. REMICADE [Suspect]
     Indication: COLITIS ULCERATIVE
     Dosage: 3 INFUSIONS ADMINISTERED
     Route: 042
     Dates: start: 20120101, end: 20120101
  3. CLONIDINE [Concomitant]
     Indication: HYPERTENSION
     Route: 048
  4. PREDNISONE [Concomitant]
     Indication: DIARRHOEA
     Route: 048
  5. LIALDA [Concomitant]
     Indication: COLITIS ULCERATIVE
     Route: 048

REACTIONS (5)
  - PRESYNCOPE [None]
  - HEADACHE [None]
  - DIZZINESS [None]
  - DRUG INEFFECTIVE [None]
  - PRODUCT QUALITY ISSUE [None]
